FAERS Safety Report 24157924 (Version 3)
Quarter: 2024Q3

REPORT INFORMATION
  Report Type: Spontaneous
  Country: FI (occurrence: FI)
  Receive Date: 20240731
  Receipt Date: 20240920
  Transmission Date: 20241017
  Serious: Yes (Hospitalization)
  Sender: BLUEPRINT MEDICINES
  Company Number: FI-Blueprint Medicines Corporation-SO-FI-2024-001485

PATIENT
  Age: 58 Year
  Sex: Male
  Weight: 91.6 kg

DRUGS (14)
  1. AVAPRITINIB [Suspect]
     Active Substance: AVAPRITINIB
     Indication: Gastrointestinal stromal tumour
     Route: 065
     Dates: start: 20220223
  2. AVAPRITINIB [Suspect]
     Active Substance: AVAPRITINIB
     Route: 065
     Dates: start: 20220223
  3. AVAPRITINIB [Suspect]
     Active Substance: AVAPRITINIB
     Route: 065
     Dates: end: 20240720
  4. AVAPRITINIB [Suspect]
     Active Substance: AVAPRITINIB
     Dosage: ALTERNATE DOSE OF 200 AND 300MG
     Route: 065
     Dates: start: 20240726
  5. AVAPRITINIB [Suspect]
     Active Substance: AVAPRITINIB
     Dosage: ALTERNATE DOSE OF 200 AND 300MG
     Route: 065
     Dates: start: 20240726
  6. AVAPRITINIB [Suspect]
     Active Substance: AVAPRITINIB
     Dosage: ALTERNATE DOSE OF 200 AND 300MG
     Route: 065
     Dates: start: 20220223, end: 20240720
  7. AVAPRITINIB [Suspect]
     Active Substance: AVAPRITINIB
     Dosage: ALTERNATE DOSE OF 200 AND 300MG
     Route: 065
     Dates: start: 20220223, end: 20240720
  8. AVAPRITINIB [Suspect]
     Active Substance: AVAPRITINIB
     Route: 048
     Dates: start: 20220223, end: 20240910
  9. AVAPRITINIB [Suspect]
     Active Substance: AVAPRITINIB
     Route: 065
     Dates: start: 20240823
  10. PANTOPRAZOLE [Concomitant]
     Active Substance: PANTOPRAZOLE
     Indication: Prophylaxis
     Route: 048
     Dates: start: 20240705
  11. PANTOPRAZOLE [Concomitant]
     Active Substance: PANTOPRAZOLE
     Indication: Faeces discoloured
     Route: 065
     Dates: start: 20240719, end: 20240719
  12. LOSARTAN [Concomitant]
     Active Substance: LOSARTAN\LOSARTAN POTASSIUM
     Indication: Hypertension
     Route: 048
  13. ASPIRIN [Concomitant]
     Active Substance: ASPIRIN
     Indication: Prophylaxis
     Route: 048
     Dates: end: 20240909
  14. ASPIRIN [Concomitant]
     Active Substance: ASPIRIN
     Route: 048

REACTIONS (2)
  - Faeces discoloured [Recovered/Resolved]
  - Anaemia [Recovered/Resolved]

NARRATIVE: CASE EVENT DATE: 20240719
